FAERS Safety Report 10243454 (Version 1)
Quarter: 2014Q2

REPORT INFORMATION
  Report Type: Report from Study
  Country: US (occurrence: US)
  Receive Date: 20140618
  Receipt Date: 20140618
  Transmission Date: 20141212
  Serious: Yes (Hospitalization, Other)
  Sender: FDA-Public Use
  Company Number: PHEH2014US011959

PATIENT
  Sex: Female
  Weight: 50.34 kg

DRUGS (3)
  1. EXJADE [Suspect]
     Indication: IRON OVERLOAD
     Dosage: 500 MG, BID
  2. ADVAIR DISKUS [Concomitant]
     Dosage: 100/50
  3. SPIRIVA HANDIHALER [Concomitant]
     Dosage: UNK UKN, UNK

REACTIONS (1)
  - Pneumonia [Unknown]
